FAERS Safety Report 4503682-9 (Version None)
Quarter: 2004Q4

REPORT INFORMATION
  Report Type: 
  Country: None (occurrence: None)
  Receive Date: 20040928
  Receipt Date: 20040609
  Transmission Date: 20050328
  Serious: No
  Sender: FDA-Public Use
  Company Number: 04P-163-0263389-00

PATIENT
  Age: 70 Year
  Sex: Female
  Weight: 52.1637 kg

DRUGS (7)
  1. HUMIRA [Suspect]
     Indication: RHEUMATOID ARTHRITIS
     Dosage: 40 MG, 1 IN 2 WK, SUBCUTANEOUS
     Route: 058
     Dates: start: 20030101
  2. PREDNISONE [Concomitant]
  3. CITALOPRAM HYDROBROMIDE [Concomitant]
  4. LANSOPRAZOLE [Concomitant]
  5. PROPACET 100 [Concomitant]
  6. MELOXICAM [Concomitant]
  7. ALENDRONATE SODIUM [Concomitant]

REACTIONS (2)
  - RHEUMATOID ARTHRITIS [None]
  - UNEVALUABLE EVENT [None]
